FAERS Safety Report 4341706-2 (Version None)
Quarter: 2004Q2

REPORT INFORMATION
  Report Type: 
  Country: None (occurrence: None)
  Receive Date: 20040415
  Receipt Date: 20040331
  Transmission Date: 20050107
  Serious: Yes (Hospitalization)
  Sender: FDA-Public Use
  Company Number: USA040463720

PATIENT
  Age: 66 Year
  Sex: Female

DRUGS (6)
  1. FORTEO [Suspect]
     Indication: OSTEOPOROSIS
     Dates: start: 20031216
  2. CELEBREX [Concomitant]
  3. PREDNISONE [Concomitant]
  4. CATAFLAM (DICLOFENAC SODIUM) [Concomitant]
  5. ACETAMINOPHEN [Concomitant]
  6. ULTRACET [Concomitant]

REACTIONS (7)
  - CHEST DISCOMFORT [None]
  - CHEST WALL PAIN [None]
  - DEHYDRATION [None]
  - MUSCLE TIGHTNESS [None]
  - PAIN [None]
  - PHARMACEUTICAL PRODUCT COMPLAINT [None]
  - WEIGHT DECREASED [None]
